FAERS Safety Report 5607563-9 (Version None)
Quarter: 2008Q1

REPORT INFORMATION
  Report Type: 
  Country: None (occurrence: None)
  Receive Date: 20080130
  Receipt Date: 20080121
  Transmission Date: 20080703
  Serious: Yes (Hospitalization)
  Sender: FDA-Public Use
  Company Number: AT-BAYER-200811764GPV

PATIENT
  Age: 59 Year
  Sex: Male

DRUGS (2)
  1. SORAFENIB [Suspect]
     Indication: HEPATIC NEOPLASM MALIGNANT
     Dosage: TOTAL DAILY DOSE: 800 MG
     Route: 048
     Dates: start: 20071119, end: 20071214
  2. SORAFENIB [Suspect]
     Dosage: TOTAL DAILY DOSE: 400 MG
     Route: 048
     Dates: start: 20071215

REACTIONS (3)
  - CHEST DISCOMFORT [None]
  - GENERAL PHYSICAL HEALTH DETERIORATION [None]
  - HYPERTHYROIDISM [None]
